FAERS Safety Report 19934388 (Version 1)
Quarter: 2021Q4

REPORT INFORMATION
  Report Type: Spontaneous
  Country: FR (occurrence: FR)
  Receive Date: 20211008
  Receipt Date: 20211008
  Transmission Date: 20220304
  Serious: Yes (Hospitalization)
  Sender: FDA-Public Use
  Company Number: None

PATIENT
  Age: 30 Year
  Sex: Female

DRUGS (5)
  1. MIRTAZAPINE [Suspect]
     Active Substance: MIRTAZAPINE
     Indication: Intentional overdose
     Dosage: IMV
     Route: 048
     Dates: start: 20210504, end: 20210504
  2. PRAZEPAM [Suspect]
     Active Substance: PRAZEPAM
     Indication: Suicide attempt
     Dosage: IMV
     Route: 048
     Dates: start: 20210504, end: 20210504
  3. ACETAMINOPHEN [Suspect]
     Active Substance: ACETAMINOPHEN
     Indication: Intentional overdose
     Dosage: IMV
     Route: 048
     Dates: start: 20210504, end: 20210504
  4. VENLAFAXINE HYDROCHLORIDE [Suspect]
     Active Substance: VENLAFAXINE HYDROCHLORIDE
     Indication: Intentional overdose
     Dosage: IMV
     Route: 048
     Dates: start: 20210504, end: 20210504
  5. ESOMEPRAZOLE ALMUS [ESOMEPRAZOLE MAGNESIUM] [Concomitant]
     Indication: Gastrooesophageal reflux disease
     Dosage: IMV
     Route: 048

REACTIONS (2)
  - Overdose [Recovered/Resolved]
  - Abdominal pain upper [Recovered/Resolved]

NARRATIVE: CASE EVENT DATE: 20210504
